FAERS Safety Report 5218292-8 (Version None)
Quarter: 2007Q1

REPORT INFORMATION
  Report Type: 
  Country: None (occurrence: None)
  Receive Date: 20070122
  Receipt Date: 20070122
  Transmission Date: 20070707
  Serious: No
  Sender: FDA-Public Use
  Company Number: None

PATIENT
  Age: 63 Year
  Sex: Female

DRUGS (3)
  1. LISINOPRIL [Suspect]
     Indication: HYPERTENSION
     Dosage: 10MG Q D PO
     Route: 048
     Dates: start: 20061014, end: 20061017
  2. ASPIRIN [Concomitant]
  3. METOPROLOL SUCCINATE [Concomitant]

REACTIONS (5)
  - DYSARTHRIA [None]
  - ERYTHEMA [None]
  - LOCALISED OEDEMA [None]
  - SWOLLEN TONGUE [None]
  - TENDERNESS [None]
